FAERS Safety Report 5149099-8 (Version None)
Quarter: 2006Q4

REPORT INFORMATION
  Report Type: 
  Country: None (occurrence: None)
  Receive Date: 20061113
  Receipt Date: 20060721
  Transmission Date: 20070319
  Serious: No
  Sender: FDA-Public Use
  Company Number: US-GLAXOSMITHKLINE-A0613113A

PATIENT
  Sex: Male

DRUGS (4)
  1. COREG [Suspect]
     Indication: TACHYCARDIA
     Dosage: 6.125MG TWICE PER DAY
     Route: 048
     Dates: start: 20040401
  2. ADVAIR DISKUS 100/50 [Concomitant]
  3. ASPIRIN [Concomitant]
  4. MULTI-VITAMIN [Concomitant]

REACTIONS (2)
  - DYSPNOEA [None]
  - HEART RATE IRREGULAR [None]
